FAERS Safety Report 5383796-4 (Version None)
Quarter: 2007Q3

REPORT INFORMATION
  Report Type: 
  Country: None (occurrence: None)
  Receive Date: 20070711
  Receipt Date: 20070701
  Transmission Date: 20080115
  Serious: Yes (Hospitalization, Other)
  Sender: FDA-Public Use
  Company Number: BE-ABBOTT-07P-013-0370756-00

PATIENT
  Sex: Female
  Weight: 80 kg

DRUGS (5)
  1. REDUCTIL [Suspect]
     Indication: WEIGHT CONTROL
     Dates: start: 20070505, end: 20070508
  2. EMCOMCOR [Concomitant]
     Indication: DRUG USE FOR UNKNOWN INDICATION
  3. L-TGYROXINE [Concomitant]
     Indication: DRUG USE FOR UNKNOWN INDICATION
  4. FENOFIBRATE [Concomitant]
     Indication: DRUG USE FOR UNKNOWN INDICATION
  5. HEPARIN SODIUM [Concomitant]
     Indication: DRUG USE FOR UNKNOWN INDICATION

REACTIONS (1)
  - GLAUCOMA [None]
